FAERS Safety Report 9369217 (Version 1)
Quarter: 2013Q2

REPORT INFORMATION
  Report Type: Spontaneous
  Country: FR (occurrence: FR)
  Receive Date: 20130626
  Receipt Date: 20130626
  Transmission Date: 20140414
  Serious: Yes (Life-Threatening, Hospitalization)
  Sender: FDA-Public Use
  Company Number: PHHY2013FR065331

PATIENT
  Age: 81 Year
  Sex: Male

DRUGS (7)
  1. EXFORGE [Suspect]
     Indication: HYPERTENSION
     Dosage: 1 DF, (VALS 160 MG, AMLO 10 MG)
     Route: 048
     Dates: end: 20120521
  2. TARCEVA [Suspect]
     Indication: METASTASES TO ADRENALS
     Dosage: 150 MG, QD
     Route: 048
     Dates: start: 20120501, end: 20120519
  3. KARDEGIC [Concomitant]
     Indication: CAROTID ARTERIOSCLEROSIS
     Dosage: 300 MG, UNK
     Route: 048
  4. LASILIX [Concomitant]
     Indication: HYPERTENSION
     Dosage: 60 MG, UNK
     Route: 048
     Dates: end: 20120521
  5. AMLOR [Concomitant]
     Indication: HYPERTENSION
     Dosage: 10 MG, UNK
     Route: 048
     Dates: end: 20120521
  6. ALIMTA [Concomitant]
     Indication: LUNG NEOPLASM MALIGNANT
     Dosage: 1ST COURSE
     Dates: start: 20120214
  7. ALIMTA [Concomitant]
     Dosage: 2ND COURSE
     Dates: start: 20120306

REACTIONS (6)
  - Dehydration [Recovering/Resolving]
  - Renal failure acute [Recovering/Resolving]
  - Rash [Unknown]
  - Diarrhoea [Unknown]
  - Nausea [Unknown]
  - Vomiting [Unknown]
